FAERS Safety Report 6773409-9 (Version None)
Quarter: 2010Q2

REPORT INFORMATION
  Report Type: 
  Country: None (occurrence: None)
  Receive Date: 20100616
  Receipt Date: 20100612
  Transmission Date: 20101027
  Serious: Yes (Hospitalization)
  Sender: FDA-Public Use
  Company Number: US-GILEAD-2010-0029782

PATIENT
  Sex: Male
  Weight: 97.156 kg

DRUGS (16)
  1. LETAIRIS [Suspect]
     Indication: PULMONARY ARTERIAL HYPERTENSION
     Route: 048
     Dates: start: 20090723
  2. WARFARIN [Concomitant]
  3. FUROSEMIDE [Concomitant]
  4. SPIRONOLACTONE [Concomitant]
  5. COZAAR [Concomitant]
  6. METOPROLOL [Concomitant]
  7. PRAZOSIN HCL [Concomitant]
  8. OXYGEN [Concomitant]
  9. BACTRIM [Concomitant]
  10. PROTONIX [Concomitant]
  11. ACETAMINOPHEN [Concomitant]
  12. PREDNISONE [Concomitant]
  13. POTASSIUM CHLORIDE [Concomitant]
  14. MECLIZINE [Concomitant]
  15. HYDROCODONE BITARTRATE AND ACETAMINOPHEN [Concomitant]
  16. VITAMIN C [Concomitant]

REACTIONS (1)
  - NAUSEA [None]
